FAERS Safety Report 13080486 (Version 3)
Quarter: 2017Q1

REPORT INFORMATION
  Report Type: Spontaneous
  Country: BR (occurrence: BR)
  Receive Date: 20170103
  Receipt Date: 20170117
  Transmission Date: 20170428
  Serious: Yes (Hospitalization, Other)
  Sender: FDA-Public Use
  Company Number: BR-PFIZER INC-2016597728

PATIENT
  Age: 58 Year
  Sex: Male

DRUGS (7)
  1. LOSARTAN. [Concomitant]
     Active Substance: LOSARTAN
     Dosage: UNK
  2. PREGABALIN. [Concomitant]
     Active Substance: PREGABALIN
  3. ZOLTEC [Suspect]
     Active Substance: FLUCONAZOLE
     Indication: INTERVERTEBRAL DISCITIS
  4. ZOLTEC [Suspect]
     Active Substance: FLUCONAZOLE
     Indication: CANDIDA INFECTION
     Dosage: 600 MG, DAILY, (WHICH CAN BE 4 CAPSULES OF 150MG OR 6 OF 100MG)
     Dates: start: 201508, end: 201609
  5. VENLAFAXIN [Concomitant]
     Active Substance: VENLAFAXINE HYDROCHLORIDE
     Dosage: UNK
  6. LYRICA [Concomitant]
     Active Substance: PREGABALIN
     Dosage: UNK
  7. LIPLESS [Concomitant]
     Active Substance: CIPROFIBRATE
     Dosage: UNK

REACTIONS (4)
  - Candida infection [Recovering/Resolving]
  - Product use issue [Unknown]
  - Condition aggravated [Recovering/Resolving]
  - Treatment failure [Unknown]

NARRATIVE: CASE EVENT DATE: 201508
